FAERS Safety Report 6241004-6 (Version None)
Quarter: 2009Q2

REPORT INFORMATION
  Report Type: 
  Country: None (occurrence: None)
  Receive Date: 20090623
  Receipt Date: 20090615
  Transmission Date: 20091009
  Serious: Yes (Death, Hospitalization)
  Sender: FDA-Public Use
  Company Number: B0578713A

PATIENT
  Age: 79 Year
  Sex: Male

DRUGS (1)
  1. REQUIP [Suspect]
     Indication: PARKINSON'S DISEASE
     Dosage: 32MG PER DAY
     Route: 048
     Dates: start: 20090605, end: 20090609

REACTIONS (5)
  - ACCIDENTAL OVERDOSE [None]
  - ATRIAL FIBRILLATION [None]
  - HEPATIC FAILURE [None]
  - PALPITATIONS [None]
  - RENAL FAILURE ACUTE [None]
